FAERS Safety Report 8176159-X (Version None)
Quarter: 2012Q1

REPORT INFORMATION
  Report Type: 
  Country: None (occurrence: None)
  Receive Date: 20120301
  Receipt Date: 20120220
  Transmission Date: 20120608
  Serious: Yes (Other)
  Sender: FDA-Public Use
  Company Number: CO-JNJFOC-20120210977

PATIENT
  Age: 11 Year
  Sex: Female

DRUGS (2)
  1. REMICADE [Suspect]
     Route: 042
     Dates: start: 20120103
  2. REMICADE [Suspect]
     Indication: PSORIASIS
     Route: 042
     Dates: start: 20120215

REACTIONS (6)
  - INFUSION RELATED REACTION [None]
  - HEADACHE [None]
  - NAUSEA [None]
  - CHEST PAIN [None]
  - DYSPNOEA [None]
  - VOMITING [None]
